FAERS Safety Report 6243486-2 (Version None)
Quarter: 2009Q2

REPORT INFORMATION
  Report Type: 
  Country: None (occurrence: None)
  Receive Date: 20090622
  Receipt Date: 20090611
  Transmission Date: 20091009
  Serious: Yes (Death, Life-Threatening, Hospitalization, Other)
  Sender: FDA-Public Use
  Company Number: 82466

PATIENT
  Age: 32 Year
  Sex: Female

DRUGS (2)
  1. ADRIAMYCIN PFS [Suspect]
     Indication: ACUTE PROMYELOCYTIC LEUKAEMIA
  2. DAUNORUBICIN HCL [Suspect]

REACTIONS (4)
  - CARDIAC FAILURE [None]
  - CARDIOGENIC SHOCK [None]
  - HYPOXIA [None]
  - MULTI-ORGAN FAILURE [None]
